FAERS Safety Report 19920643 (Version 5)
Quarter: 2025Q1

REPORT INFORMATION
  Report Type: Report from Study
  Country: TH (occurrence: TH)
  Receive Date: 20211005
  Receipt Date: 20250211
  Transmission Date: 20250409
  Serious: Yes (Other)
  Sender: NOVARTIS
  Company Number: TH-NOVARTISPH-NVSC2020TH260803

PATIENT
  Age: 52 Year
  Sex: Female

DRUGS (46)
  1. KISQALI [Suspect]
     Active Substance: RIBOCICLIB
     Indication: Breast cancer metastatic
     Dosage: 3 DOSAGE FORM, QD (3 TABS/DAY)
     Route: 048
  2. KISQALI [Suspect]
     Active Substance: RIBOCICLIB
     Dosage: 2 DOSAGE FORM, QD (2 TABS/DAY FOR 21 DAYS THEN STOP 7 DAYS)
     Route: 048
  3. KISQALI [Suspect]
     Active Substance: RIBOCICLIB
     Route: 048
     Dates: start: 20200128
  4. KISQALI [Suspect]
     Active Substance: RIBOCICLIB
     Route: 065
     Dates: start: 20200204
  5. KISQALI [Suspect]
     Active Substance: RIBOCICLIB
     Route: 048
     Dates: start: 20200218, end: 20200222
  6. KISQALI [Suspect]
     Active Substance: RIBOCICLIB
     Route: 065
     Dates: start: 20200303
  7. KISQALI [Suspect]
     Active Substance: RIBOCICLIB
     Route: 065
     Dates: start: 20200303
  8. KISQALI [Suspect]
     Active Substance: RIBOCICLIB
     Route: 065
     Dates: start: 20200317
  9. KISQALI [Suspect]
     Active Substance: RIBOCICLIB
     Route: 065
     Dates: start: 20200331
  10. KISQALI [Suspect]
     Active Substance: RIBOCICLIB
     Route: 065
     Dates: start: 20200414
  11. KISQALI [Suspect]
     Active Substance: RIBOCICLIB
     Route: 065
     Dates: start: 20200428
  12. KISQALI [Suspect]
     Active Substance: RIBOCICLIB
     Route: 048
     Dates: start: 20200512
  13. KISQALI [Suspect]
     Active Substance: RIBOCICLIB
     Route: 048
     Dates: start: 20200526
  14. KISQALI [Suspect]
     Active Substance: RIBOCICLIB
     Route: 048
     Dates: start: 20200526
  15. KISQALI [Suspect]
     Active Substance: RIBOCICLIB
     Route: 048
     Dates: start: 20200623
  16. KISQALI [Suspect]
     Active Substance: RIBOCICLIB
     Route: 065
     Dates: start: 20200721
  17. KISQALI [Suspect]
     Active Substance: RIBOCICLIB
     Route: 048
     Dates: start: 20200818
  18. KISQALI [Suspect]
     Active Substance: RIBOCICLIB
     Route: 048
     Dates: start: 20200915
  19. KISQALI [Suspect]
     Active Substance: RIBOCICLIB
     Dosage: 2 DOSAGE FORM, QD (2 TABLETS ONCE DAILY AFTER MEAL)
     Route: 048
  20. KISQALI [Suspect]
     Active Substance: RIBOCICLIB
     Dosage: 2 DOSAGE FORM, QD (2 TABLETS ONCE DAILY AFTER MEAL)
     Route: 048
  21. FEMARA [Suspect]
     Active Substance: LETROZOLE
     Indication: Product used for unknown indication
     Route: 048
     Dates: start: 20200128
  22. FEMARA [Suspect]
     Active Substance: LETROZOLE
     Route: 048
     Dates: start: 20200204
  23. FEMARA [Suspect]
     Active Substance: LETROZOLE
     Route: 048
     Dates: start: 20200218, end: 20200222
  24. FEMARA [Suspect]
     Active Substance: LETROZOLE
     Route: 065
     Dates: start: 20200303
  25. FEMARA [Suspect]
     Active Substance: LETROZOLE
     Route: 065
     Dates: start: 20200303
  26. FEMARA [Suspect]
     Active Substance: LETROZOLE
     Route: 065
     Dates: start: 20200317
  27. FEMARA [Suspect]
     Active Substance: LETROZOLE
     Route: 065
     Dates: start: 20200331
  28. FEMARA [Suspect]
     Active Substance: LETROZOLE
     Route: 048
     Dates: start: 20200414
  29. FEMARA [Suspect]
     Active Substance: LETROZOLE
     Route: 048
     Dates: start: 20200428
  30. FEMARA [Suspect]
     Active Substance: LETROZOLE
     Route: 048
     Dates: start: 20200512
  31. FEMARA [Suspect]
     Active Substance: LETROZOLE
     Route: 048
     Dates: start: 20200526
  32. FEMARA [Suspect]
     Active Substance: LETROZOLE
     Route: 048
     Dates: start: 20200623
  33. FEMARA [Suspect]
     Active Substance: LETROZOLE
     Route: 048
     Dates: start: 20200721
  34. FEMARA [Suspect]
     Active Substance: LETROZOLE
     Route: 048
     Dates: start: 20200818
  35. FEMARA [Suspect]
     Active Substance: LETROZOLE
     Route: 048
     Dates: start: 20200915
  36. FEMARA [Suspect]
     Active Substance: LETROZOLE
     Dosage: 2.5 MG 1 TABLET (ONCE DAILY AFTER MEAL)
     Route: 048
  37. VITAMIN D3 [Concomitant]
     Active Substance: CHOLECALCIFEROL
     Indication: Product used for unknown indication
     Route: 065
     Dates: start: 20200331
  38. VITAMIN D3 [Concomitant]
     Active Substance: CHOLECALCIFEROL
     Route: 065
     Dates: start: 20200623
  39. VITAMIN D3 [Concomitant]
     Active Substance: CHOLECALCIFEROL
     Route: 065
     Dates: start: 20200721
  40. ONEALFA [Concomitant]
     Active Substance: ALFACALCIDOL
     Indication: Product used for unknown indication
     Route: 065
     Dates: start: 20200414
  41. ONEALFA [Concomitant]
     Active Substance: ALFACALCIDOL
     Route: 065
     Dates: start: 20200428
  42. ONEALFA [Concomitant]
     Active Substance: ALFACALCIDOL
     Route: 048
     Dates: start: 20200512
  43. ONEALFA [Concomitant]
     Active Substance: ALFACALCIDOL
     Route: 048
     Dates: start: 20200526
  44. ONEALFA [Concomitant]
     Active Substance: ALFACALCIDOL
     Route: 048
     Dates: start: 20200818
  45. ONEALFA [Concomitant]
     Active Substance: ALFACALCIDOL
     Route: 048
     Dates: start: 20200915
  46. CALCIUM CARBONATE [Concomitant]
     Active Substance: CALCIUM CARBONATE
     Indication: Product used for unknown indication
     Dosage: 1.5 G (1 TABLET), QD
     Route: 048

REACTIONS (7)
  - Neutropenia [Unknown]
  - COVID-19 [Unknown]
  - Platelet count abnormal [Unknown]
  - Fatigue [Unknown]
  - Platelet count decreased [Unknown]
  - Neutrophil count decreased [Unknown]
  - Inappropriate schedule of product administration [Unknown]

NARRATIVE: CASE EVENT DATE: 20200218
